FAERS Safety Report 4356190-2 (Version None)
Quarter: 2004Q2

REPORT INFORMATION
  Report Type: 
  Country: None (occurrence: None)
  Receive Date: 20040511
  Receipt Date: 20040423
  Transmission Date: 20050107
  Serious: Yes (Other)
  Sender: FDA-Public Use
  Company Number: PHBS2004BR05602

PATIENT
  Sex: Male

DRUGS (2)
  1. DIOVAN [Suspect]
     Indication: HYPERTENSION
     Dosage: 80 MG/D
     Route: 048
     Dates: start: 20040423
  2. DIOVAN [Suspect]
     Dosage: 160 MG, ONCE/SINGLE
     Route: 048
     Dates: start: 20040423, end: 20040423

REACTIONS (6)
  - CONFUSIONAL STATE [None]
  - MEDICATION ERROR [None]
  - PYREXIA [None]
  - SPEECH DISORDER [None]
  - TREMOR [None]
  - URINARY TRACT INFECTION [None]
